FAERS Safety Report 4280674-9 (Version None)
Quarter: 2004Q1

REPORT INFORMATION
  Report Type: 
  Country: None (occurrence: None)
  Receive Date: 20040127
  Receipt Date: 20040113
  Transmission Date: 20041129
  Serious: Yes (Other)
  Sender: FDA-Public Use
  Company Number: 2003IM01151

PATIENT
  Age: 72 Year
  Sex: Male

DRUGS (13)
  1. INTERFERON GAMMA-1B [Suspect]
     Indication: PULMONARY FIBROSIS
     Dosage: TIW;SUBCUTANEOUS
     Route: 058
     Dates: start: 20031122, end: 20030815
  2. METOPROLOL [Concomitant]
  3. PROTONIX [Concomitant]
  4. LIPITOR [Concomitant]
  5. EFFEXOR [Concomitant]
  6. PLAVIX [Concomitant]
  7. MIRAPEX [Concomitant]
  8. TRILEPTAL [Concomitant]
  9. PREDNISONE [Concomitant]
  10. GLAUCOMA EYE DROPS [Concomitant]
  11. ASPIRIN [Concomitant]
  12. CLARITIN [Concomitant]
  13. AMOXICILLIN [Concomitant]

REACTIONS (1)
  - CHRONIC MYELOID LEUKAEMIA [None]
